FAERS Safety Report 6174025-2 (Version None)
Quarter: 2009Q2

REPORT INFORMATION
  Report Type: 
  Country: None (occurrence: None)
  Receive Date: 20090430
  Receipt Date: 20080212
  Transmission Date: 20091009
  Serious: No
  Sender: FDA-Public Use
  Company Number: US-ASTRAZENECA-2008UW02910

PATIENT
  Age: 71 Year
  Sex: Female
  Weight: 93 kg

DRUGS (6)
  1. NEXIUM [Suspect]
     Indication: GASTROOESOPHAGEAL REFLUX DISEASE
     Route: 048
     Dates: start: 20080205
  2. PLAVIX [Concomitant]
  3. SYNTHROID [Concomitant]
  4. BENICAR [Concomitant]
  5. DOXAZOSIN MESYLATE [Concomitant]
  6. ASPIRIN [Concomitant]

REACTIONS (1)
  - FAECES DISCOLOURED [None]
